FAERS Safety Report 16386062 (Version 1)
Quarter: 2019Q2

REPORT INFORMATION
  Report Type: Spontaneous
  Country: US (occurrence: US)
  Receive Date: 20190603
  Receipt Date: 20190603
  Transmission Date: 20190711
  Serious: No
  Sender: FDA-Public Use
  Company Number: US-ARBOR PHARMACEUTICALS, LLC-US-2018ARB000633

PATIENT

DRUGS (2)
  1. HORIZANT [Suspect]
     Active Substance: GABAPENTIN ENACARBIL
     Dosage: UNK
  2. HORIZANT [Suspect]
     Active Substance: GABAPENTIN ENACARBIL
     Indication: RESTLESS LEGS SYNDROME
     Dosage: UNK

REACTIONS (7)
  - Sleep disorder [Unknown]
  - Vision blurred [Not Recovered/Not Resolved]
  - Therapeutic product effect decreased [Unknown]
  - Back pain [Unknown]
  - Headache [Unknown]
  - Tremor [Unknown]
  - Abdominal distension [Not Recovered/Not Resolved]
